FAERS Safety Report 9471328 (Version 2)
Quarter: 2013Q3

REPORT INFORMATION
  Report Type: Spontaneous
  Country: US (occurrence: US)
  Receive Date: 20130822
  Receipt Date: 20130828
  Transmission Date: 20140515
  Serious: No
  Sender: FDA-Public Use
  Company Number: US-009507513-1308USA009223

PATIENT
  Sex: Female

DRUGS (2)
  1. PEGINTRON [Suspect]
     Indication: HEPATITIS C
     Dosage: UNK
     Dates: start: 20100611, end: 20100814
  2. REBETOL [Suspect]
     Indication: HEPATITIS C
     Dosage: UNK
     Dates: start: 20100611, end: 20100814

REACTIONS (19)
  - Mental status changes [Unknown]
  - Blood count abnormal [Unknown]
  - Pigmentation disorder [Not Recovered/Not Resolved]
  - Blood pressure [Recovering/Resolving]
  - Joint swelling [Unknown]
  - Incorrect dose administered [Unknown]
  - Somnolence [Unknown]
  - Local swelling [Unknown]
  - Muscle spasms [Not Recovered/Not Resolved]
  - Muscle spasms [Unknown]
  - Arthralgia [Not Recovered/Not Resolved]
  - Chills [Unknown]
  - Headache [Unknown]
  - Pruritus [Not Recovered/Not Resolved]
  - Rash [Not Recovered/Not Resolved]
  - Muscle spasms [Unknown]
  - Hypertension [Unknown]
  - Hepatic cirrhosis [Unknown]
  - Blood count abnormal [Unknown]
